FAERS Safety Report 4481097-X (Version None)
Quarter: 2004Q4

REPORT INFORMATION
  Report Type: 
  Country: None (occurrence: None)
  Receive Date: 20041021
  Receipt Date: 20041018
  Transmission Date: 20050328
  Serious: Yes (Death)
  Sender: FDA-Public Use
  Company Number: GB-MERCK-0410GBR00194

PATIENT
  Age: 61 Year
  Sex: Female

DRUGS (3)
  1. COZAAR [Suspect]
     Route: 048
  2. CELECOXIB [Suspect]
     Indication: ARTHRITIS
     Route: 048
     Dates: start: 20040525, end: 20040531
  3. LISINOPRIL [Suspect]
     Route: 065

REACTIONS (3)
  - DIALYSIS [None]
  - HYPOTENSION [None]
  - RENAL FAILURE ACUTE [None]
